FAERS Safety Report 21388865 (Version 1)
Quarter: 2022Q3

REPORT INFORMATION
  Report Type: Spontaneous
  Country: GB (occurrence: None)
  Receive Date: 20220929
  Receipt Date: 20220929
  Transmission Date: 20221027
  Serious: Yes (Hospitalization)
  Sender: FDA-Public Use
  Company Number: None

PATIENT
  Age: 83 Year
  Sex: Male
  Weight: 100 kg

DRUGS (10)
  1. APIXABAN [Suspect]
     Active Substance: APIXABAN
     Indication: Atrial fibrillation
     Dosage: 5MG
     Dates: start: 20171117
  2. CAPSAICIN [Concomitant]
     Active Substance: CAPSAICIN
  3. DIGOXIN [Concomitant]
     Active Substance: DIGOXIN
  4. DULOXETINE [Concomitant]
     Active Substance: DULOXETINE
  5. EZETIMIBE [Concomitant]
     Active Substance: EZETIMIBE
  6. FENOFIBRATE [Concomitant]
     Active Substance: FENOFIBRATE
  7. FUROSEMIDE [Concomitant]
     Active Substance: FUROSEMIDE
  8. GLUCOPHAGE XR [Concomitant]
     Active Substance: METFORMIN HYDROCHLORIDE
  9. OFLOXACIN [Concomitant]
     Active Substance: OFLOXACIN
  10. ACETAMINOPHEN\CODEINE PHOSPHATE [Concomitant]
     Active Substance: ACETAMINOPHEN\CODEINE PHOSPHATE

REACTIONS (1)
  - Transient ischaemic attack [Recovered/Resolved]

NARRATIVE: CASE EVENT DATE: 20220901
